FAERS Safety Report 21289269 (Version 1)
Quarter: 2022Q3

REPORT INFORMATION
  Report Type: Spontaneous
  Country: US (occurrence: US)
  Receive Date: 20220902
  Receipt Date: 20220902
  Transmission Date: 20221027
  Serious: Yes (Hospitalization)
  Sender: FDA-Public Use
  Company Number: US-ABBVIE-22K-163-4349044-00

PATIENT

DRUGS (1)
  1. IMBRUVICA [Suspect]
     Active Substance: IBRUTINIB
     Indication: Diffuse large B-cell lymphoma
     Route: 048

REACTIONS (5)
  - Hospitalisation [Unknown]
  - Medication error [Unknown]
  - Product use complaint [Unknown]
  - Off label use [Unknown]
  - Unevaluable event [Unknown]
